FAERS Safety Report 8122176-5 (Version None)
Quarter: 2012Q1

REPORT INFORMATION
  Report Type: 
  Country: None (occurrence: None)
  Receive Date: 20120208
  Receipt Date: 20120126
  Transmission Date: 20120608
  Serious: Yes (Hospitalization)
  Sender: FDA-Public Use
  Company Number: JP-UCBSA-050001

PATIENT
  Age: 70 Year
  Sex: Female

DRUGS (2)
  1. DEPAKENE [Suspect]
     Dosage: UNKNOWN DOSE
     Route: 048
     Dates: end: 20111114
  2. KEPPRA [Suspect]
     Indication: EPILEPSY
     Route: 048
     Dates: start: 20111014, end: 20111114

REACTIONS (1)
  - HEPATITIS FULMINANT [None]
